FAERS Safety Report 12086680 (Version 2)
Quarter: 2016Q1

REPORT INFORMATION
  Report Type: Spontaneous
  Country: US (occurrence: US)
  Receive Date: 20160217
  Receipt Date: 20160217
  Transmission Date: 20160526
  Serious: No
  Sender: FDA-Public Use
  Company Number: US-ALLERGAN-1502540US

PATIENT
  Sex: Female
  Weight: 72.56 kg

DRUGS (5)
  1. MYCOPHENOLATE [Concomitant]
     Active Substance: MYCOPHENOLIC ACID
     Indication: LIMB OPERATION
     Dosage: 250 MG, QD
  2. PILOCARPINE. [Concomitant]
     Active Substance: PILOCARPINE
     Indication: DRY MOUTH
     Dosage: 5 MG, QD
  3. DEXILANT [Concomitant]
     Active Substance: DEXLANSOPRAZOLE
     Dosage: 60 MG, UNK
  4. RESTASIS [Suspect]
     Active Substance: CYCLOSPORINE
     Indication: DRY EYE
     Dosage: 2 GTT, BID
     Route: 047
     Dates: start: 201501
  5. RESTASIS [Suspect]
     Active Substance: CYCLOSPORINE
     Indication: SCLERODERMA

REACTIONS (6)
  - Eye infection [Recovered/Resolved]
  - Off label use [Unknown]
  - Multiple use of single-use product [Unknown]
  - Visual acuity reduced [Recovering/Resolving]
  - Foreign body sensation in eyes [Not Recovered/Not Resolved]
  - Inappropriate schedule of drug administration [Unknown]
